FAERS Safety Report 5238058-2 (Version None)
Quarter: 2007Q1

REPORT INFORMATION
  Report Type: 
  Country: None (occurrence: None)
  Receive Date: 20070215
  Receipt Date: 20070207
  Transmission Date: 20070707
  Serious: Yes (Death, Hospitalization, Other)
  Sender: FDA-Public Use
  Company Number: HQWYE372206SEP06

PATIENT
  Sex: Female
  Weight: 49 kg

DRUGS (11)
  1. MYLOTARG [Suspect]
     Indication: ACUTE MYELOID LEUKAEMIA RECURRENT
     Route: 041
     Dates: start: 20060628, end: 20060628
  2. ADALAT [Concomitant]
     Indication: HYPERTENSION
     Route: 048
     Dates: start: 20060628
  3. GASTER [Concomitant]
     Indication: PROPHYLAXIS
     Route: 048
     Dates: start: 20060628
  4. ZOLPIDEM TARTRATE [Concomitant]
     Indication: INSOMNIA
     Route: 048
     Dates: start: 20060628
  5. PARIET [Concomitant]
     Indication: GASTRIC DISORDER
     Route: 048
     Dates: start: 20060801
  6. DIFLUCAN [Concomitant]
     Indication: PROPHYLAXIS
     Route: 048
     Dates: start: 20060628
  7. VICCILLIN [Concomitant]
     Indication: PROPHYLAXIS
     Route: 048
     Dates: start: 20060714
  8. LOXONIN [Concomitant]
     Indication: PYREXIA
     Route: 048
     Dates: start: 20060714
  9. NEUTROGIN [Concomitant]
     Indication: WHITE BLOOD CELL COUNT DECREASED
     Route: 041
     Dates: start: 20060703, end: 20060712
  10. FUNGIZONE [Concomitant]
     Indication: PROPHYLAXIS
     Route: 048
     Dates: start: 20060628, end: 20060719
  11. LEVOFLOXACIN [Concomitant]
     Indication: PROPHYLAXIS
     Route: 048
     Dates: start: 20060628

REACTIONS (4)
  - CEREBRAL HAEMORRHAGE [None]
  - FEBRILE NEUTROPENIA [None]
  - PLATELET COUNT DECREASED [None]
  - PNEUMONIA [None]
